FAERS Safety Report 22364954 (Version 1)
Quarter: 2023Q2

REPORT INFORMATION
  Report Type: Spontaneous
  Country: CA (occurrence: CA)
  Receive Date: 20230525
  Receipt Date: 20230525
  Transmission Date: 20230721
  Serious: Yes (Other)
  Sender: FDA-Public Use
  Company Number: CA-002147023-NVSC2023CA116019

PATIENT
  Sex: Female

DRUGS (2)
  1. ISOPTO CARPINE [Suspect]
     Active Substance: PILOCARPINE HYDROCHLORIDE
     Indication: Glaucoma
     Dosage: UNK, STRENGTH: 2 %
     Route: 065
  2. ISOPTO CARPINE [Suspect]
     Active Substance: PILOCARPINE HYDROCHLORIDE
     Dosage: UNK, STRENGTH: 4 %
     Route: 065

REACTIONS (2)
  - Blindness transient [Unknown]
  - Product availability issue [Unknown]
